FAERS Safety Report 14205309 (Version 1)
Quarter: 2017Q4

REPORT INFORMATION
  Report Type: Spontaneous
  Country: MX (occurrence: MX)
  Receive Date: 20171120
  Receipt Date: 20171120
  Transmission Date: 20180321
  Serious: Yes (Other)
  Sender: FDA-Public Use
  Company Number: MX-PFIZER INC-2017487852

PATIENT
  Age: 81 Year
  Sex: Female

DRUGS (1)
  1. DETRUSITOL SR [Suspect]
     Active Substance: TOLTERODINE TARTRATE
     Indication: INCONTINENCE
     Dosage: 4 MG, UNK
     Dates: start: 2007

REACTIONS (2)
  - Accident [Not Recovered/Not Resolved]
  - Lower limb fracture [Not Recovered/Not Resolved]
